FAERS Safety Report 6447594-2 (Version None)
Quarter: 2009Q4

REPORT INFORMATION
  Report Type: 
  Country: None (occurrence: None)
  Receive Date: 20091119
  Receipt Date: 20090710
  Transmission Date: 20100525
  Serious: Yes (Hospitalization)
  Sender: FDA-Public Use
  Company Number: US-AMGEN-KDL354179

PATIENT
  Sex: Male
  Weight: 118.9 kg

DRUGS (11)
  1. ENBREL [Suspect]
     Indication: PSORIATIC ARTHROPATHY
     Route: 058
     Dates: start: 20051219, end: 20071129
  2. ENBREL [Suspect]
     Indication: PSORIASIS
  3. INSULIN [Concomitant]
  4. CELEXA [Concomitant]
  5. ZESTRIL [Concomitant]
  6. IMITREX [Concomitant]
  7. CRESTOR [Concomitant]
  8. CIALIS [Concomitant]
  9. ASPIRIN [Concomitant]
  10. NABUMETONE [Concomitant]
  11. TRIAMCINOLONE [Concomitant]

REACTIONS (4)
  - POSTOPERATIVE HERNIA [None]
  - PSORIASIS [None]
  - PSORIATIC ARTHROPATHY [None]
  - RENAL CANCER [None]
